FAERS Safety Report 16642815 (Version 2)
Quarter: 2019Q3

REPORT INFORMATION
  Report Type: Spontaneous
  Country: US (occurrence: US)
  Receive Date: 20190729
  Receipt Date: 20190813
  Transmission Date: 20191004
  Serious: No
  Sender: FDA-Public Use
  Company Number: US-PFIZER INC-2019321118

PATIENT
  Age: 69 Year
  Sex: Male
  Weight: 79.38 kg

DRUGS (8)
  1. LYRICA [Suspect]
     Active Substance: PREGABALIN
     Indication: POST HERPETIC NEURALGIA
     Dosage: 25 MG, 2X/DAY
     Dates: start: 20181020
  2. LYRICA [Interacting]
     Active Substance: PREGABALIN
     Dosage: 75 MG, 2X/DAY
     Dates: start: 20181114
  3. LYRICA [Interacting]
     Active Substance: PREGABALIN
     Indication: HERPES ZOSTER
     Dosage: 125 MG, DAILY [50 MG IN THE MORNING, 25 MG MID-DAY, 50 MG AT NIGHT]
  4. LYRICA [Interacting]
     Active Substance: PREGABALIN
     Dosage: 150 MG, 2X/DAY (TWO 75MG CAPSULES TWICE A DAY)
     Dates: start: 20181126
  5. LYRICA [Interacting]
     Active Substance: PREGABALIN
     Dosage: 75 MG, 1X/DAY (MORNING)
     Dates: start: 20181123
  6. RANEXA [Interacting]
     Active Substance: RANOLAZINE
     Dosage: 500 MG, 2X/DAY
  7. LYRICA [Interacting]
     Active Substance: PREGABALIN
     Dosage: 150 MG, 1X/DAY (AT NIGHT)
     Dates: start: 20181123
  8. LYRICA [Interacting]
     Active Substance: PREGABALIN
     Dosage: 200 MG, 2X/DAY (ONE CAPSULE IN MORNING AND NIGHT)
     Dates: start: 20181213

REACTIONS (2)
  - Drug level increased [Unknown]
  - Drug interaction [Unknown]
